FAERS Safety Report 9736654 (Version 2)
Quarter: 2015Q3

REPORT INFORMATION
  Report Type: Spontaneous
  Country: US (occurrence: US)
  Receive Date: 20131206
  Receipt Date: 20150804
  Transmission Date: 20151125
  Serious: No
  Sender: FDA-Public Use
  Company Number: US-GILEAD-2009-0022748

PATIENT
  Age: 57 Year
  Sex: Female

DRUGS (13)
  1. SYNTHROID [Concomitant]
     Active Substance: LEVOTHYROXINE SODIUM
  2. FUROSEMIDE. [Concomitant]
     Active Substance: FUROSEMIDE
  3. TYLENOL [Concomitant]
     Active Substance: ACETAMINOPHEN
  4. KLOR-CON [Concomitant]
     Active Substance: POTASSIUM CHLORIDE
  5. COUMADIN [Concomitant]
     Active Substance: WARFARIN SODIUM
  6. NASONEX [Concomitant]
     Active Substance: MOMETASONE FUROATE
  7. ATROVENT [Concomitant]
     Active Substance: IPRATROPIUM BROMIDE
  8. CALTRATE + VIT D [Concomitant]
  9. PULMICORT TURBUHALER [Concomitant]
     Active Substance: BUDESONIDE
  10. IRON [Concomitant]
     Active Substance: IRON
  11. ZOLOFT [Concomitant]
     Active Substance: SERTRALINE HYDROCHLORIDE
  12. LETAIRIS [Suspect]
     Active Substance: AMBRISENTAN
     Indication: PULMONARY ARTERIAL HYPERTENSION
     Route: 048
     Dates: start: 20090121
  13. NEXIUM [Concomitant]
     Active Substance: ESOMEPRAZOLE MAGNESIUM

REACTIONS (3)
  - Haemoglobin decreased [Not Recovered/Not Resolved]
  - Asthenia [Not Recovered/Not Resolved]
  - Fatigue [Not Recovered/Not Resolved]
